FAERS Safety Report 8045197-X (Version None)
Quarter: 2012Q1

REPORT INFORMATION
  Report Type: 
  Country: None (occurrence: None)
  Receive Date: 20120113
  Receipt Date: 20110902
  Transmission Date: 20120608
  Serious: Yes (Other)
  Sender: FDA-Public Use
  Company Number: US-ASTRAZENECA-2011SE53054

PATIENT
  Age: 48 Year
  Sex: Female
  Weight: 94.8 kg

DRUGS (3)
  1. EFFEXOR [Concomitant]
     Route: 048
  2. SEROQUEL XR [Suspect]
     Indication: BIPOLAR DISORDER
     Dosage: 300-500 MG AT NIGHT
     Route: 048
     Dates: end: 20110819
  3. COUMADIN [Concomitant]
     Route: 048

REACTIONS (6)
  - SINUSITIS [None]
  - DRUG DOSE OMISSION [None]
  - INSOMNIA [None]
  - HEADACHE [None]
  - CEREBROVASCULAR ACCIDENT [None]
  - NAUSEA [None]
